FAERS Safety Report 13558838 (Version 1)
Quarter: 2017Q2

REPORT INFORMATION
  Report Type: Report from Study
  Country: IT (occurrence: IT)
  Receive Date: 20170518
  Receipt Date: 20170518
  Transmission Date: 20170830
  Serious: Yes (Death, Life-Threatening, Hospitalization)
  Sender: FDA-Public Use
  Company Number: IT-AMGEN-ITACT2012063824

PATIENT
  Age: 5 Year
  Sex: Male
  Weight: 19 kg

DRUGS (14)
  1. G-CSF [Concomitant]
     Active Substance: GRANULOCYTE COLONY-STIMULATING FACTOR NOS
  2. ANTITHROMBIN III [Concomitant]
     Active Substance: ANTITHROMBIN III HUMAN
  3. ZYLORIC [Concomitant]
     Active Substance: ALLOPURINOL
  4. BLINATUMOMAB [Suspect]
     Active Substance: BLINATUMOMAB
     Indication: ACUTE LYMPHOCYTIC LEUKAEMIA
     Dosage: 30 MUG/M2, QD
     Route: 042
     Dates: start: 20121004, end: 20121007
  5. LEGALON [Concomitant]
     Active Substance: MILK THISTLE
  6. RASBURICASE [Concomitant]
     Active Substance: RASBURICASE
  7. GLUTATHIONE [Concomitant]
     Active Substance: GLUTATHIONE
  8. BACTRIM [Concomitant]
     Active Substance: SULFAMETHOXAZOLE\TRIMETHOPRIM
  9. ACETYLCYSTEIN [Concomitant]
     Active Substance: ACETYLCYSTEINE
  10. DEURSIL [Concomitant]
     Active Substance: URSODIOL
  11. OMEPRAZOLE. [Concomitant]
     Active Substance: OMEPRAZOLE
  12. TAZOCIN [Concomitant]
     Active Substance: PIPERACILLIN SODIUM\TAZOBACTAM SODIUM
  13. IDROCORTISONE ACETATO [Concomitant]
  14. CONTROX [Concomitant]

REACTIONS (2)
  - Respiratory failure [Not Recovered/Not Resolved]
  - Cardiac failure [Fatal]

NARRATIVE: CASE EVENT DATE: 20121007
